FAERS Safety Report 15051888 (Version 1)
Quarter: 2018Q2

REPORT INFORMATION
  Report Type: Spontaneous
  Country: US (occurrence: US)
  Receive Date: 20180622
  Receipt Date: 20180622
  Transmission Date: 20180711
  Serious: Yes (Other)
  Sender: FDA-Public Use
  Company Number: US-IPSEN BIOPHARMACEUTICALS, INC.-2018-09120

PATIENT

DRUGS (2)
  1. BOTULINUM TOXIN [Suspect]
     Active Substance: BOTULINUM TOXIN NOS
     Indication: MUSCLE SPASTICITY
  2. BOTULINUM TOXIN [Suspect]
     Active Substance: BOTULINUM TOXIN NOS
     Indication: MUSCLE SPASTICITY
     Dosage: 1290 UNITS
     Route: 030

REACTIONS (3)
  - Overdose [Unknown]
  - Dysarthria [Unknown]
  - Muscular weakness [Unknown]
